FAERS Safety Report 26077957 (Version 1)
Quarter: 2025Q4

REPORT INFORMATION
  Report Type: Spontaneous
  Country: US (occurrence: US)
  Receive Date: 20251122
  Receipt Date: 20251122
  Transmission Date: 20260118
  Serious: No
  Sender: MDD OPERATIONS
  Company Number: US-MDD US Operations-MDD202509-003914

PATIENT
  Age: 49 Year
  Sex: Male

DRUGS (3)
  1. ONAPGO [Suspect]
     Active Substance: APOMORPHINE HYDROCHLORIDE
     Indication: Parkinson^s disease
     Dosage: 1MG/HOUR
     Dates: start: 20250922
  2. ONAPGO [Suspect]
     Active Substance: APOMORPHINE HYDROCHLORIDE
     Indication: On and off phenomenon
     Dosage: 98MG EACH DAY
     Dates: start: 202509
  3. XEOMIN [Concomitant]
     Active Substance: INCOBOTULINUMTOXINA
     Dosage: SINGLE DOSE VIAL (SDV)

REACTIONS (2)
  - Somnolence [Recovered/Resolved]
  - Infusion site nodule [Unknown]

NARRATIVE: CASE EVENT DATE: 20250922
